FAERS Safety Report 5209461-1 (Version None)
Quarter: 2007Q1

REPORT INFORMATION
  Report Type: 
  Country: None (occurrence: None)
  Receive Date: 20070116
  Receipt Date: 20070105
  Transmission Date: 20070707
  Serious: Yes (Other)
  Sender: FDA-Public Use
  Company Number: GB-PFIZER INC-2007003493

PATIENT
  Sex: Female

DRUGS (3)
  1. ALDACTONE [Suspect]
     Indication: ALOPECIA
  2. VENTOLIN [Concomitant]
  3. VITAMIN CAP [Concomitant]

REACTIONS (5)
  - ASTHENIA [None]
  - HEART RATE INCREASED [None]
  - HYPERSENSITIVITY [None]
  - LOWER RESPIRATORY TRACT INFECTION [None]
  - WHEEZING [None]
